FAERS Safety Report 14144246 (Version 1)
Quarter: 2017Q4

REPORT INFORMATION
  Report Type: Spontaneous
  Country: US (occurrence: None)
  Receive Date: 20171030
  Receipt Date: 20171030
  Transmission Date: 20180321
  Serious: Yes (Hospitalization)
  Sender: FDA-Public Use
  Company Number: None

PATIENT
  Sex: Male

DRUGS (6)
  1. METFORMIN [Concomitant]
     Active Substance: METFORMIN HYDROCHLORIDE
  2. IMATINIB 400MG [Suspect]
     Active Substance: IMATINIB
     Indication: GASTRIC CANCER
     Route: 048
     Dates: start: 20170403
  3. COREG [Concomitant]
     Active Substance: CARVEDILOL
  4. LIPITOR [Concomitant]
     Active Substance: ATORVASTATIN CALCIUM
  5. FUROSEMIDE. [Concomitant]
     Active Substance: FUROSEMIDE
  6. NATEGLINIDE. [Concomitant]
     Active Substance: NATEGLINIDE

REACTIONS (2)
  - Drug dose omission [None]
  - Cardiac operation [None]
